FAERS Safety Report 14308793 (Version 3)
Quarter: 2018Q1

REPORT INFORMATION
  Report Type: Spontaneous
  Country: IT (occurrence: IT)
  Receive Date: 20171220
  Receipt Date: 20180326
  Transmission Date: 20180509
  Serious: Yes (Death, Life-Threatening, Hospitalization, Other)
  Sender: FDA-Public Use
  Company Number: IT-AUROBINDO-AUR-APL-2017-46237

PATIENT
  Age: 82 Year
  Sex: Female

DRUGS (11)
  1. LEVOFLOXACIN. [Interacting]
     Active Substance: LEVOFLOXACIN
     Indication: STAPHYLOCOCCAL SKIN INFECTION
     Dosage: MAINTENANCE DOSE
     Route: 048
     Dates: start: 20150522
  2. FENTANYL. [Interacting]
     Active Substance: FENTANYL
     Indication: PROCEDURAL PAIN
     Dosage: 100 MCG 1 TABLET UPGRADEABLE TO 200 MCG.TRANSMUCOSAL ORAL ()
     Dates: start: 20150602, end: 20150602
  3. LEVOFLOXACIN. [Interacting]
     Active Substance: LEVOFLOXACIN
     Route: 048
  4. VANCOMYCIN#1 [Interacting]
     Active Substance: VANCOMYCIN
     Indication: STAPHYLOCOCCAL INFECTION
     Dosage: IN TOTAL
     Route: 065
     Dates: start: 20150521, end: 20150521
  5. FENTANYL. [Interacting]
     Active Substance: FENTANYL
     Indication: ISCHAEMIC LIMB PAIN
     Dosage: 100 MCG 1 TABLET UPGRADEABLE TO 200 MCG.TRANSMUCOSAL ORAL ()
     Dates: start: 20150602, end: 20150602
  6. RIFAMPICIN [Interacting]
     Active Substance: RIFAMPIN
     Indication: STAPHYLOCOCCAL SKIN INFECTION
     Route: 065
  7. LEVOFLOXACIN. [Suspect]
     Active Substance: LEVOFLOXACIN
     Indication: STAPHYLOCOCCAL INFECTION
     Dosage: LOADING DOSE ; IN TOTAL
     Route: 048
     Dates: start: 20150521, end: 20150521
  8. RIFAMPICIN [Interacting]
     Active Substance: RIFAMPIN
     Route: 065
  9. LEVOFLOXACIN. [Interacting]
     Active Substance: LEVOFLOXACIN
     Route: 048
  10. VANCOMYCIN#1 [Interacting]
     Active Substance: VANCOMYCIN
     Dosage: CYCLICAL
     Route: 042
     Dates: start: 20150522
  11. RIFAMPICIN [Interacting]
     Active Substance: RIFAMPIN
     Indication: STAPHYLOCOCCAL INFECTION
     Dosage: 300 MILLIGRAM
     Route: 042
     Dates: start: 20150521

REACTIONS (14)
  - Tremor [Recovered/Resolved]
  - Altered state of consciousness [Recovered/Resolved]
  - Somnolence [Recovered/Resolved]
  - Sopor [Recovering/Resolving]
  - Overdose [Unknown]
  - Therapy naive [Unknown]
  - Drug interaction [Unknown]
  - Toxicity to various agents [Unknown]
  - Depressed level of consciousness [Recovered/Resolved]
  - Off label use [Unknown]
  - Hallucination [Recovered/Resolved]
  - Status epilepticus [Recovered/Resolved]
  - Miosis [Recovered/Resolved]
  - Drug ineffective [Unknown]

NARRATIVE: CASE EVENT DATE: 20150602
